FAERS Safety Report 10467573 (Version 1)
Quarter: 2014Q3

REPORT INFORMATION
  Report Type: Report from Study
  Country: VE (occurrence: VE)
  Receive Date: 20140922
  Receipt Date: 20140922
  Transmission Date: 20150326
  Serious: Yes (Hospitalization)
  Sender: FDA-Public Use
  Company Number: VE-ABBVIE-14K-178-1285043-00

PATIENT
  Age: 37 Year
  Sex: Female
  Weight: 55 kg

DRUGS (2)
  1. METHOTREXATE [Concomitant]
     Active Substance: METHOTREXATE
     Indication: RHEUMATOID ARTHRITIS
     Route: 048
     Dates: start: 2012
  2. HUMIRA [Suspect]
     Active Substance: ADALIMUMAB
     Indication: RHEUMATOID ARTHRITIS
     Route: 058
     Dates: start: 2013, end: 20140829

REACTIONS (2)
  - Ovarian cyst [Recovering/Resolving]
  - Appendicitis [Recovering/Resolving]

NARRATIVE: CASE EVENT DATE: 20140911
